FAERS Safety Report 13375981 (Version 1)
Quarter: 2017Q1

REPORT INFORMATION
  Report Type: Spontaneous
  Country: JP (occurrence: JP)
  Receive Date: 20170328
  Receipt Date: 20170328
  Transmission Date: 20170429
  Serious: Yes (Other)
  Sender: FDA-Public Use
  Company Number: JP-ROCHE-1911193

PATIENT
  Age: 56 Year
  Sex: Female

DRUGS (3)
  1. RANIBIZUMAB [Suspect]
     Active Substance: RANIBIZUMAB
     Indication: RETINAL VEIN OCCLUSION
     Route: 031
     Dates: start: 20131203
  2. TRIAMCINOLONE ACETONIDE. [Concomitant]
     Active Substance: TRIAMCINOLONE ACETONIDE
     Indication: RETINAL VEIN OCCLUSION
     Route: 058
     Dates: start: 20131218
  3. AFLIBERCEPT [Concomitant]
     Active Substance: AFLIBERCEPT
     Indication: RETINAL DETACHMENT
     Dosage: PRN
     Route: 065
     Dates: start: 20140227

REACTIONS (4)
  - Optic disc disorder [Unknown]
  - Wyburn Mason^s syndrome [Unknown]
  - Eye haemorrhage [Unknown]
  - Haemangioma of retina [Unknown]
